FAERS Safety Report 10203129 (Version 1)
Quarter: 2014Q2

REPORT INFORMATION
  Report Type: Spontaneous
  Country: CN (occurrence: CN)
  Receive Date: 20140529
  Receipt Date: 20140529
  Transmission Date: 20141212
  Serious: Yes (Other)
  Sender: FDA-Public Use
  Company Number: CN-ROCHE-1409306

PATIENT
  Age: 1 Month
  Sex: Female

DRUGS (1)
  1. ROCEPHIN [Suspect]
     Indication: BRONCHOPNEUMONIA
     Route: 041
     Dates: start: 20130331, end: 20130407

REACTIONS (1)
  - Hepatic function abnormal [Not Recovered/Not Resolved]
